FAERS Safety Report 8252007-4 (Version None)
Quarter: 2012Q2

REPORT INFORMATION
  Report Type: 
  Country: None (occurrence: None)
  Receive Date: 20120402
  Receipt Date: 20120323
  Transmission Date: 20120825
  Serious: Yes (Hospitalization)
  Sender: FDA-Public Use
  Company Number: AU-FRI-1000029481

PATIENT
  Sex: Female
  Weight: 65 kg

DRUGS (4)
  1. LEXAPRO [Suspect]
     Indication: ANXIETY DISORDER
     Dosage: PRESCRIBED OVERDOSE: 50 MG DAILY
     Route: 048
  2. MIRTAZAPINE [Suspect]
  3. OXAZEPAM [Suspect]
  4. LORAZEPAM [Suspect]

REACTIONS (2)
  - OVERDOSE [None]
  - EPISTAXIS [None]
